FAERS Safety Report 16802169 (Version 1)
Quarter: 2019Q3

REPORT INFORMATION
  Report Type: Spontaneous
  Country: US (occurrence: US)
  Receive Date: 20190912
  Receipt Date: 20190912
  Transmission Date: 20191005
  Serious: No
  Sender: FDA-Public Use
  Company Number: US-KOWA-19US001621

PATIENT

DRUGS (6)
  1. LIVALO [Suspect]
     Active Substance: PITAVASTATIN CALCIUM
     Indication: LOW DENSITY LIPOPROTEIN INCREASED
  2. LIVALO [Suspect]
     Active Substance: PITAVASTATIN CALCIUM
     Indication: HYPERLIPIDAEMIA
     Dosage: 2 MG, QOD
     Dates: start: 20190620, end: 20190626
  3. ASA [Concomitant]
     Active Substance: ASPIRIN
     Indication: PRODUCT USED FOR UNKNOWN INDICATION
     Dosage: 81 MG, QD
  4. ESCITALOPRAM [Concomitant]
     Active Substance: ESCITALOPRAM OXALATE
     Indication: ANXIETY
     Dosage: 10 MG, QD
     Dates: start: 2015
  5. LEVOTHYROXIN [Concomitant]
     Active Substance: LEVOTHYROXINE
     Indication: HYPOTHYROIDISM
     Dosage: 0.1 MG, QD
     Dates: start: 1999
  6. TRAZODONE [Concomitant]
     Active Substance: TRAZODONE HYDROCHLORIDE
     Indication: INSOMNIA
     Dosage: 25 MG, QD
     Dates: start: 2015

REACTIONS (5)
  - Dysphonia [Recovered/Resolved]
  - Wheezing [Recovered/Resolved]
  - Fatigue [Recovered/Resolved]
  - Inappropriate schedule of product administration [Unknown]
  - Back pain [Recovered/Resolved]

NARRATIVE: CASE EVENT DATE: 201906
